FAERS Safety Report 9003029 (Version 2)
Quarter: 2013Q1

REPORT INFORMATION
  Report Type: Spontaneous
  Country: US (occurrence: US)
  Receive Date: 20130108
  Receipt Date: 20130221
  Transmission Date: 20140127
  Serious: Yes (Hospitalization, Other)
  Sender: FDA-Public Use
  Company Number: US-PFIZER INC-2013007646

PATIENT
  Age: 84 Year
  Sex: Male
  Weight: 70.3 kg

DRUGS (2)
  1. LYRICA [Suspect]
     Indication: CONVULSION
     Dosage: 100 MG, 3X/DAY
     Route: 048
  2. FELBATOL [Concomitant]
     Dosage: UNK

REACTIONS (2)
  - Urinary tract infection [Unknown]
  - Body height decreased [Unknown]
